FAERS Safety Report 4629343-3 (Version None)
Quarter: 2005Q2

REPORT INFORMATION
  Report Type: 
  Country: None (occurrence: None)
  Receive Date: 20050404
  Receipt Date: 20050329
  Transmission Date: 20051028
  Serious: Yes (Hospitalization, Other)
  Sender: FDA-Public Use
  Company Number: GXKR2005JP00800

PATIENT
  Age: 69 Year
  Sex: Male

DRUGS (3)
  1. RIMACTANE [Suspect]
     Indication: MYCOBACTERIA BLOOD TEST POSITIVE
     Dosage: ORAL
     Route: 048
     Dates: start: 20040715, end: 20040906
  2. ISONIAZID [Suspect]
     Indication: MYCOBACTERIA BLOOD TEST POSITIVE
     Dates: start: 20040715, end: 20040722
  3. PYRAZINAMIDE [Suspect]
     Indication: MYCOBACTERIA BLOOD TEST POSITIVE
     Dosage: ORAL
     Route: 048
     Dates: start: 20040722, end: 20040906

REACTIONS (7)
  - ALANINE AMINOTRANSFERASE INCREASED [None]
  - ASPARTATE AMINOTRANSFERASE INCREASED [None]
  - INFLAMMATION [None]
  - LIVER DISORDER [None]
  - LYMPHOCYTE STIMULATION TEST POSITIVE [None]
  - SOMNOLENCE [None]
  - STEVENS-JOHNSON SYNDROME [None]
